FAERS Safety Report 6588385-1 (Version None)
Quarter: 2010Q1

REPORT INFORMATION
  Report Type: 
  Country: None (occurrence: None)
  Receive Date: 20100218
  Receipt Date: 20091116
  Transmission Date: 20100710
  Serious: Yes (Other)
  Sender: FDA-Public Use
  Company Number: US-ALLERGAN-0912962US

PATIENT
  Age: 74 Year
  Sex: Female

DRUGS (7)
  1. BOTOX [Suspect]
     Indication: TORTICOLLIS
     Dosage: 400 UNITS, SINGLE
     Route: 030
     Dates: start: 20090817, end: 20090817
  2. BOTOX [Suspect]
     Dosage: 280 UNITS, UNK
     Route: 030
     Dates: start: 20090527, end: 20090527
  3. BOTOX [Suspect]
     Dosage: 280 UNITS, UNK
     Route: 030
     Dates: start: 20090219, end: 20090219
  4. BOTOX [Suspect]
     Dosage: EVERY 3 MONTHS
     Dates: start: 20000101
  5. ATENOLOL [Concomitant]
     Indication: PALPITATIONS
  6. SIMVASTATIN [Concomitant]
     Indication: BLOOD CHOLESTEROL INCREASED
  7. HYDROCHLOROTHIAZIDE [Concomitant]
     Indication: POLYURIA

REACTIONS (2)
  - DYSPHAGIA [None]
  - MUSCULAR WEAKNESS [None]
